FAERS Safety Report 20598716 (Version 2)
Quarter: 2022Q2

REPORT INFORMATION
  Report Type: Report from Study
  Country: BE (occurrence: BE)
  Receive Date: 20220315
  Receipt Date: 20220404
  Transmission Date: 20220721
  Serious: Yes (Other)
  Sender: FDA-Public Use
  Company Number: BE-BAYER-2022A025315

PATIENT
  Age: 43 Year
  Sex: Male

DRUGS (2)
  1. STIVARGA [Suspect]
     Active Substance: REGORAFENIB
     Indication: Colorectal cancer
     Dosage: 80 MG, QD
     Dates: start: 20220209
  2. DAFALGAN [Concomitant]
     Active Substance: ACETAMINOPHEN
     Indication: Pain
     Dosage: UNK

REACTIONS (17)
  - Abdominal distension [Recovering/Resolving]
  - Constipation [Recovering/Resolving]
  - Poor quality sleep [Unknown]
  - Chromaturia [Not Recovered/Not Resolved]
  - Dysphonia [Not Recovered/Not Resolved]
  - Mucosal inflammation [Recovering/Resolving]
  - Fatigue [Not Recovered/Not Resolved]
  - Decreased appetite [Recovering/Resolving]
  - Abdominal pain upper [Recovering/Resolving]
  - Off label use [None]
  - Hypertension [Recovering/Resolving]
  - Back pain [Recovering/Resolving]
  - Haemorrhoids [Recovering/Resolving]
  - Weight decreased [Unknown]
  - Epistaxis [Not Recovered/Not Resolved]
  - Palpitations [Recovering/Resolving]
  - Palmar-plantar erythrodysaesthesia syndrome [Recovering/Resolving]

NARRATIVE: CASE EVENT DATE: 20220209
